FAERS Safety Report 7084701-5 (Version None)
Quarter: 2010Q4

REPORT INFORMATION
  Report Type: 
  Country: None (occurrence: None)
  Receive Date: 20101104
  Receipt Date: 20101022
  Transmission Date: 20110411
  Serious: Yes (Death, Hospitalization)
  Sender: FDA-Public Use
  Company Number: US-AMGEN-QUU441845

PATIENT

DRUGS (4)
  1. NPLATE [Suspect]
     Indication: IDIOPATHIC THROMBOCYTOPENIC PURPURA
     Dosage: 195 A?G, QMO
     Route: 058
     Dates: start: 20090406, end: 20091002
  2. NPLATE [Suspect]
     Dates: start: 20090406
  3. IMMU-G [Concomitant]
     Dosage: UNK UNK, UNK
  4. PREDNISONE [Concomitant]
     Dosage: UNK UNK, UNK

REACTIONS (2)
  - EMPHYSEMA [None]
  - HOSPITALISATION [None]
